FAERS Safety Report 5773330-9 (Version None)
Quarter: 2008Q2

REPORT INFORMATION
  Report Type: 
  Country: None (occurrence: None)
  Receive Date: 20080601
  Receipt Date: 20080322
  Transmission Date: 20081010
  Serious: No
  Sender: FDA-Public Use
  Company Number: US200803005394

PATIENT
  Age: 73 Year
  Sex: Male
  Weight: 103.4 kg

DRUGS (3)
  1. BYETTA [Suspect]
     Indication: INSULIN-REQUIRING TYPE 2 DIABETES MELLITUS
     Dosage: 5 UG, AS NEEDED, SUBCUTANEOUS
     Route: 058
     Dates: start: 20080201
  2. LANTUS [Concomitant]
  3. NOVOLOG [Concomitant]

REACTIONS (5)
  - BLOOD GLUCOSE INCREASED [None]
  - DECREASED APPETITE [None]
  - NAUSEA [None]
  - NEUROPATHY PERIPHERAL [None]
  - WEIGHT DECREASED [None]
